FAERS Safety Report 8589418 (Version 3)
Quarter: 2013Q2

REPORT INFORMATION
  Report Type: Spontaneous
  Country: US (occurrence: US)
  Receive Date: 20120531
  Receipt Date: 20130425
  Transmission Date: 20140414
  Serious: No
  Sender: FDA-Public Use
  Company Number: US-ASTRAZENECA-2012SE23687

PATIENT
  Age: 55 Year
  Sex: Female

DRUGS (4)
  1. SEROQUEL [Suspect]
     Indication: BIPOLAR DISORDER
     Route: 048
  2. SEROQUEL [Suspect]
     Indication: BIPOLAR I DISORDER
     Route: 048
  3. SEROQUEL [Suspect]
     Indication: BIPOLAR DISORDER
     Route: 048
  4. SEROQUEL [Suspect]
     Indication: BIPOLAR I DISORDER
     Route: 048

REACTIONS (9)
  - Anxiety [Unknown]
  - Emotional distress [Unknown]
  - Memory impairment [Unknown]
  - Intentional self-injury [Unknown]
  - Balance disorder [Unknown]
  - Malaise [Unknown]
  - Bipolar disorder [Unknown]
  - Drug dose omission [Unknown]
  - Drug ineffective [Unknown]
